FAERS Safety Report 13101917 (Version 1)
Quarter: 2017Q1

REPORT INFORMATION
  Report Type: Report from Study
  Country: US (occurrence: US)
  Receive Date: 20170110
  Receipt Date: 20170110
  Transmission Date: 20170428
  Serious: Yes (Death)
  Sender: FDA-Public Use
  Company Number: US-PFIZER INC-2017008949

PATIENT

DRUGS (6)
  1. CARBOPLATIN. [Suspect]
     Active Substance: CARBOPLATIN
     Dosage: UNK UNK, CYCLIC (WEEKLY FROM WEEK 12, UNDER AUC 6)
     Route: 042
  2. CETUXIMAB. [Suspect]
     Active Substance: CETUXIMAB
     Indication: NON-SMALL CELL LUNG CANCER STAGE III
     Dosage: 400 MG/M2, CYCLIC (WEEK 1 DAY 1 OVER 2 HOURS)
     Route: 042
  3. PACLITAXEL. [Suspect]
     Active Substance: PACLITAXEL
     Indication: NON-SMALL CELL LUNG CANCER STAGE III
     Dosage: 45 MG/M2, CYCLIC (ADMINISTERED OVER 1 HOUR, FROM WEEK 2)
     Route: 042
  4. PACLITAXEL. [Suspect]
     Active Substance: PACLITAXEL
     Dosage: 200 MG/M2, CYCLIC (FROM WEEKS 12)
     Route: 042
  5. CARBOPLATIN. [Suspect]
     Active Substance: CARBOPLATIN
     Indication: NON-SMALL CELL LUNG CANCER STAGE III
     Dosage: UNK UNK, CYCLIC (WEEKLY FROM WEEK 2, UNDER AUC 2)
     Route: 042
  6. CETUXIMAB. [Suspect]
     Active Substance: CETUXIMAB
     Dosage: 250 MG/M2, CYCLIC (WEEKLY FROM WEEK 2, OVER 60 MINUTES)
     Route: 042

REACTIONS (2)
  - Encephalopathy [Fatal]
  - Hypoxia [Fatal]
